FAERS Safety Report 6521037-2 (Version None)
Quarter: 2009Q4

REPORT INFORMATION
  Report Type: 
  Country: None (occurrence: None)
  Receive Date: 20091229
  Receipt Date: 20091218
  Transmission Date: 20100525
  Serious: Yes (Death, Hospitalization)
  Sender: FDA-Public Use
  Company Number: VN-BAXTER-2009BH019489

PATIENT
  Sex: Male

DRUGS (1)
  1. DIANEAL [Suspect]
     Indication: PERITONEAL DIALYSIS
     Route: 033
     Dates: start: 20080327

REACTIONS (4)
  - CARDIAC FAILURE [None]
  - PERITONEAL DIALYSIS COMPLICATION [None]
  - PERITONITIS [None]
  - PYREXIA [None]
